FAERS Safety Report 4289285-2 (Version None)
Quarter: 2004Q1

REPORT INFORMATION
  Report Type: 
  Country: None (occurrence: None)
  Receive Date: 20040203
  Receipt Date: 19990210
  Transmission Date: 20041129
  Serious: Yes (Other)
  Sender: FDA-Public Use
  Company Number: 1999-012GR

PATIENT
  Age: 26 Year
  Sex: Male
  Weight: 88.4514 kg

DRUGS (1)
  1. DORYX [Suspect]
     Indication: UPPER RESPIRATORY TRACT INFECTION
     Dosage: 100 MG BID ORAL
     Route: 048
     Dates: start: 19990209, end: 19990209

REACTIONS (3)
  - ABDOMINAL PAIN [None]
  - DIARRHOEA [None]
  - NAUSEA [None]
